FAERS Safety Report 10086859 (Version 2)
Quarter: 2014Q2

REPORT INFORMATION
  Report Type: Spontaneous
  Country: US (occurrence: US)
  Receive Date: 20140418
  Receipt Date: 20140508
  Transmission Date: 20141212
  Serious: Yes (Hospitalization)
  Sender: FDA-Public Use
  Company Number: US-UCBSA-118017

PATIENT
  Age: 36 Year
  Sex: Male
  Weight: 77.11 kg

DRUGS (2)
  1. VIMPAT [Suspect]
     Indication: EPILEPSY
  2. KEPPRA [Suspect]

REACTIONS (2)
  - Generalised tonic-clonic seizure [Recovered/Resolved]
  - Overdose [Recovered/Resolved]
